FAERS Safety Report 14596067 (Version 2)
Quarter: 2018Q1

REPORT INFORMATION
  Report Type: Spontaneous
  Country: US (occurrence: US)
  Receive Date: 20180303
  Receipt Date: 20180322
  Transmission Date: 20180509
  Serious: No
  Sender: FDA-Public Use
  Company Number: US-GLAXOSMITHKLINE-US2018034441

PATIENT
  Sex: Female

DRUGS (10)
  1. COMBIVENT [Concomitant]
     Active Substance: ALBUTEROL SULFATE\IPRATROPIUM BROMIDE
  2. AMLODIPINE [Concomitant]
     Active Substance: AMLODIPINE BESYLATE
  3. PREDNISONE. [Suspect]
     Active Substance: PREDNISONE
     Indication: COUGH
     Dosage: UNK UNK, U
     Dates: start: 20180208
  4. GUAIFENESIN. [Concomitant]
     Active Substance: GUAIFENESIN
  5. PREDNISONE. [Suspect]
     Active Substance: PREDNISONE
     Indication: CHRONIC OBSTRUCTIVE PULMONARY DISEASE
  6. CALCIUM [Concomitant]
     Active Substance: CALCIUM
  7. CETIRIZINE [Suspect]
     Active Substance: CETIRIZINE HYDROCHLORIDE
     Indication: MULTIPLE ALLERGIES
     Dosage: UNK UNK, U
  8. ADVAIR DISKUS [Suspect]
     Active Substance: FLUTICASONE PROPIONATE\SALMETEROL XINAFOATE
     Indication: CHRONIC OBSTRUCTIVE PULMONARY DISEASE
     Dosage: 1 PUFF(S), BID
     Route: 055
  9. LISINOPRIL. [Concomitant]
     Active Substance: LISINOPRIL
  10. MAGNESIUM [Concomitant]
     Active Substance: MAGNESIUM

REACTIONS (11)
  - Drug ineffective [Unknown]
  - Wheezing [Unknown]
  - Intentional product misuse [Unknown]
  - Cough [Unknown]
  - Underdose [Unknown]
  - Dry eye [Not Recovered/Not Resolved]
  - Dyspnoea [Unknown]
  - Multiple allergies [Unknown]
  - Restlessness [Recovered/Resolved]
  - Drug effect decreased [Unknown]
  - Vision blurred [Not Recovered/Not Resolved]
